FAERS Safety Report 8134756-1 (Version None)
Quarter: 2012Q1

REPORT INFORMATION
  Report Type: 
  Country: None (occurrence: None)
  Receive Date: 20120103
  Receipt Date: 20111113
  Transmission Date: 20120608
  Serious: No
  Sender: FDA-Public Use
  Company Number: AE-2011-003426

PATIENT
  Age: 63 Year
  Sex: Male

DRUGS (3)
  1. PEGASYS [Concomitant]
  2. INCIVEK [Suspect]
     Dosage: 2250 MG (750 MG, 1 IN 8 HR), ORAL
     Route: 048
     Dates: start: 20111014
  3. RIBAVIRIN [Concomitant]

REACTIONS (9)
  - CHILLS [None]
  - PYREXIA [None]
  - WEIGHT DECREASED [None]
  - INCORRECT DRUG ADMINISTRATION DURATION [None]
  - DYSGEUSIA [None]
  - NAUSEA [None]
  - VOMITING [None]
  - TREMOR [None]
  - PLATELET COUNT DECREASED [None]
